FAERS Safety Report 4827860-4 (Version None)
Quarter: 2005Q4

REPORT INFORMATION
  Report Type: 
  Country: None (occurrence: None)
  Receive Date: 20051114
  Receipt Date: 20051114
  Transmission Date: 20060501
  Serious: Yes (Life-Threatening, Hospitalization, Disabling)
  Sender: FDA-Public Use
  Company Number: None

PATIENT
  Sex: Female

DRUGS (2)
  1. PIPERACILLIN/TAZOBACTAM    4.5 GRAM [Suspect]
     Indication: SEPSIS
     Dosage: 4.5 GRAMS   Q6H    IV
     Route: 042
     Dates: start: 20050801, end: 20050815
  2. LEVOFLOXACIN [Suspect]
     Indication: SEPSIS
     Dosage: 500 MG   Q24H   IV
     Route: 042
     Dates: start: 20050801, end: 20050815

REACTIONS (2)
  - CLOSTRIDIUM COLITIS [None]
  - DIARRHOEA [None]
